FAERS Safety Report 19506410 (Version 1)
Quarter: 2021Q3

REPORT INFORMATION
  Report Type: Spontaneous
  Country: US (occurrence: US)
  Receive Date: 20210708
  Receipt Date: 20210708
  Transmission Date: 20211014
  Serious: No
  Sender: FDA-Public Use
  Company Number: None

PATIENT
  Age: 68 Year
  Sex: Female
  Weight: 87 kg

DRUGS (1)
  1. DIPHENHYDRAMINE (DIPHENHYDRAMINE HCL 50MG/ML INJ) [Suspect]
     Active Substance: DIPHENHYDRAMINE HYDROCHLORIDE
     Route: 042
     Dates: start: 20210525, end: 20210525

REACTIONS (6)
  - Sedation [None]
  - Oropharyngeal pain [None]
  - Muscle twitching [None]
  - Post procedural complication [None]
  - Hallucination [None]
  - Eye disorder [None]

NARRATIVE: CASE EVENT DATE: 20210525
